FAERS Safety Report 13357993 (Version 21)
Quarter: 2023Q4

REPORT INFORMATION
  Report Type: Spontaneous
  Country: US (occurrence: US)
  Receive Date: 20170322
  Receipt Date: 20231026
  Transmission Date: 20240110
  Serious: No
  Sender: FDA-Public Use
  Company Number: US-PFIZER INC-2017124435

PATIENT
  Age: 65 Year
  Sex: Male
  Weight: 99.79 kg

DRUGS (9)
  1. SOMAVERT [Suspect]
     Active Substance: PEGVISOMANT
     Indication: Acromegaly
     Dosage: 15 MG, ONE PER DAY
     Dates: start: 2010
  2. SOMAVERT [Suspect]
     Active Substance: PEGVISOMANT
     Dosage: 15 MG, UNK
     Dates: start: 201011
  3. SOMAVERT [Suspect]
     Active Substance: PEGVISOMANT
     Dosage: 15 MG, DAILY
     Dates: start: 20101227, end: 20180115
  4. SOMAVERT [Suspect]
     Active Substance: PEGVISOMANT
     Dosage: 15 MG
     Route: 048
     Dates: start: 2010
  5. SOMAVERT [Suspect]
     Active Substance: PEGVISOMANT
     Dosage: 20 MG, DAILY
  6. ANDROGEL [Concomitant]
     Active Substance: TESTOSTERONE
     Indication: Acromegaly
     Dosage: 40 MG, DAILY (2 PUMPS AND IT IS 2 PER DAY, IT IS 40 MG PER DAY)
  7. DESMOPRESSIN [Concomitant]
     Active Substance: DESMOPRESSIN
     Indication: Acromegaly
     Dosage: UNK
  8. FISH OIL [Concomitant]
     Active Substance: FISH OIL
     Dosage: UNK
  9. ASPIRIN [Concomitant]
     Active Substance: ASPIRIN
     Dosage: UNK

REACTIONS (24)
  - Rash [Unknown]
  - Pruritus [Unknown]
  - Hypersensitivity [Unknown]
  - Fatigue [Not Recovered/Not Resolved]
  - Headache [Unknown]
  - Vision blurred [Unknown]
  - Libido decreased [Unknown]
  - Polydipsia [Unknown]
  - Polyuria [Unknown]
  - Muscular weakness [Unknown]
  - Temperature intolerance [Unknown]
  - Insomnia [Unknown]
  - Arthralgia [Unknown]
  - Hyperhidrosis [Unknown]
  - Blood testosterone decreased [Unknown]
  - Sex hormone binding globulin decreased [Unknown]
  - Blood urea nitrogen/creatinine ratio increased [Unknown]
  - Blood cholesterol increased [Unknown]
  - Weight decreased [Unknown]
  - Nocturia [Unknown]
  - Intentional product misuse [Unknown]
  - Intentional dose omission [Unknown]
  - Incorrect route of product administration [Unknown]
  - Product dispensing issue [Unknown]

NARRATIVE: CASE EVENT DATE: 20180101
